FAERS Safety Report 5144783-4 (Version None)
Quarter: 2006Q4

REPORT INFORMATION
  Report Type: 
  Country: None (occurrence: None)
  Receive Date: 20061103
  Receipt Date: 20061103
  Transmission Date: 20070319
  Serious: Yes (Life-Threatening, Hospitalization)
  Sender: FDA-Public Use
  Company Number: None

PATIENT
  Sex: Female
  Weight: 86.1834 kg

DRUGS (1)
  1. APLISOL [Suspect]
     Indication: TUBERCULOSIS
     Dosage: 5 TU/0.1ML ID
     Route: 023
     Dates: start: 20061027, end: 20061102

REACTIONS (5)
  - LOCAL REACTION [None]
  - PRURITUS [None]
  - RASH ERYTHEMATOUS [None]
  - URTICARIA GENERALISED [None]
  - WHEEZING [None]
